FAERS Safety Report 5728117-X (Version None)
Quarter: 2008Q2

REPORT INFORMATION
  Report Type: 
  Country: None (occurrence: None)
  Receive Date: 20080505
  Receipt Date: 20080429
  Transmission Date: 20081010
  Serious: Yes (Hospitalization)
  Sender: FDA-Public Use
  Company Number: US-MERCK-0804USA02599

PATIENT
  Age: 24 Month
  Sex: Male

DRUGS (5)
  1. SINGULAIR [Suspect]
     Indication: ASTHMA
     Route: 048
     Dates: start: 20011129, end: 20011201
  2. SINGULAIR [Suspect]
     Route: 048
     Dates: start: 20030101, end: 20030101
  3. SINGULAIR [Suspect]
     Indication: WHEEZING
     Route: 048
     Dates: start: 20011129, end: 20011201
  4. SINGULAIR [Suspect]
     Route: 048
     Dates: start: 20030101, end: 20030101
  5. ZYRTEC [Concomitant]
     Route: 065
     Dates: start: 20011101

REACTIONS (3)
  - HALLUCINATION [None]
  - MASTOCYTOSIS [None]
  - PSYCHOMOTOR HYPERACTIVITY [None]
